FAERS Safety Report 23857893 (Version 2)
Quarter: 2024Q4

REPORT INFORMATION
  Report Type: Spontaneous
  Country: US (occurrence: US)
  Receive Date: 20240515
  Receipt Date: 20241119
  Transmission Date: 20250114
  Serious: Yes (Hospitalization, Other)
  Sender: INCYTE
  Company Number: US-INCYTE CORPORATION-2024IN005071

PATIENT

DRUGS (4)
  1. JAKAFI [Suspect]
     Active Substance: RUXOLITINIB
     Indication: Graft versus host disease
     Dosage: 5 MILLIGRAM, QD
     Route: 048
     Dates: start: 20190419
  2. JAKAFI [Suspect]
     Active Substance: RUXOLITINIB
     Indication: Acute myeloid leukaemia
  3. REZUROCK [Concomitant]
     Active Substance: BELUMOSUDIL
     Indication: Product used for unknown indication
     Dosage: 200 MILLIGRAM, QD
     Route: 065
  4. AZITHROMYCIN [Concomitant]
     Active Substance: AZITHROMYCIN
     Indication: Infection prophylaxis
     Dosage: 250 MILLIGRAM, THREE TIMES A WEEK
     Route: 065

REACTIONS (2)
  - Pneumonia viral [Unknown]
  - Off label use [Unknown]

NARRATIVE: CASE EVENT DATE: 20190419
